FAERS Safety Report 9644687 (Version 1)
Quarter: 2013Q4

REPORT INFORMATION
  Report Type: Spontaneous
  Country: US (occurrence: US)
  Receive Date: 20131025
  Receipt Date: 20131025
  Transmission Date: 20140711
  Serious: Yes (Other)
  Sender: FDA-Public Use
  Company Number: US-ASTRAZENECA-2013SE77439

PATIENT
  Sex: Female

DRUGS (1)
  1. BRILINTA [Suspect]
     Indication: CARDIAC DISORDER
     Route: 048

REACTIONS (4)
  - Loss of consciousness [Recovered/Resolved]
  - Anaemia [Unknown]
  - Gastrointestinal haemorrhage [Unknown]
  - Off label use [Unknown]
